FAERS Safety Report 9464915 (Version 2)
Quarter: 2013Q3

REPORT INFORMATION
  Report Type: Report from Study
  Country: GB (occurrence: GB)
  Receive Date: 20130819
  Receipt Date: 20130819
  Transmission Date: 20140515
  Serious: Yes (Death)
  Sender: FDA-Public Use
  Company Number: GB-ABBOTT-13P-167-1098534-00

PATIENT
  Age: 74 Year
  Sex: Female

DRUGS (1)
  1. HUMIRA [Suspect]
     Indication: RHEUMATOID ARTHRITIS
     Route: 058
     Dates: start: 20080915, end: 20111114

REACTIONS (4)
  - Gastrointestinal haemorrhage [Fatal]
  - Malignant neoplasm of ampulla of Vater [Fatal]
  - Urosepsis [Fatal]
  - Pulmonary mass [Unknown]
